FAERS Safety Report 18676980 (Version 1)
Quarter: 2020Q4

REPORT INFORMATION
  Report Type: Spontaneous
  Country: MY (occurrence: MY)
  Receive Date: 20201229
  Receipt Date: 20201229
  Transmission Date: 20210114
  Serious: Yes (Other)
  Sender: FDA-Public Use
  Company Number: MY-MYLANLABS-2020M1104531

PATIENT
  Age: 2 Year
  Sex: Male

DRUGS (1)
  1. CELOVAN [Suspect]
     Active Substance: VANCOMYCIN
     Indication: ANTIBIOTIC THERAPY
     Dosage: 180 MILLIGRAM, Q8H
     Route: 042

REACTIONS (2)
  - Periorbital oedema [Recovering/Resolving]
  - Urticaria [Recovering/Resolving]
